FAERS Safety Report 10978007 (Version 1)
Quarter: 2015Q2

REPORT INFORMATION
  Report Type: Spontaneous
  Country: US (occurrence: None)
  Receive Date: 20150401
  Receipt Date: 20150401
  Transmission Date: 20150821
  Serious: Yes (Death)
  Sender: FDA-Public Use
  Company Number: None

PATIENT
  Age: 63 Year
  Sex: Male
  Weight: 90.72 kg

DRUGS (2)
  1. PROPOFOL. [Suspect]
     Active Substance: PROPOFOL
     Indication: ATRIAL FIBRILLATION
     Route: 042
     Dates: start: 20150324
  2. AMIODARONE [Suspect]
     Active Substance: AMIODARONE
     Route: 048
     Dates: start: 20150216, end: 20150318

REACTIONS (3)
  - Cardiac arrest [None]
  - Hepatorenal failure [None]
  - Mental status changes [None]

NARRATIVE: CASE EVENT DATE: 20150325
